FAERS Safety Report 6452714-X (Version None)
Quarter: 2009Q4

REPORT INFORMATION
  Report Type: 
  Country: None (occurrence: None)
  Receive Date: 20091124
  Receipt Date: 20091119
  Transmission Date: 20100525
  Serious: Yes (Hospitalization, Other)
  Sender: FDA-Public Use
  Company Number: US-ALLERGAN-0801505US

PATIENT
  Age: 47 Year
  Sex: Female
  Weight: 61.224 kg

DRUGS (10)
  1. BOTOX COSMETIC [Suspect]
     Indication: SKIN WRINKLING
     Dosage: 60 UNITS, SINGLE
     Route: 030
     Dates: start: 20080114, end: 20080114
  2. BOTOX COSMETIC [Suspect]
     Dosage: 50 UNITS, SINGLE
     Route: 030
     Dates: start: 20070716, end: 20070716
  3. BOTOX COSMETIC [Suspect]
  4. RESTYLANE [Concomitant]
     Indication: SKIN WRINKLING
     Dosage: 1 ML, SINGLE
     Dates: start: 20070716, end: 20070716
  5. RESTYLANE [Concomitant]
     Dosage: 1 UNK, SINGLE
     Dates: start: 20071002, end: 20071002
  6. RESTYLANE [Concomitant]
     Dosage: UNK, SINGLE
  7. CONTRACEPTIVES NOS [Concomitant]
  8. ZYRTEC [Concomitant]
     Dosage: UNK
  9. XANAX [Concomitant]
     Dosage: UNK
  10. AMBIEN [Concomitant]
     Dosage: UNK

REACTIONS (38)
  - ABASIA [None]
  - ABNORMAL BEHAVIOUR [None]
  - ASTHENIA [None]
  - BALANCE DISORDER [None]
  - BLOOD CREATINE PHOSPHOKINASE INCREASED [None]
  - BOTULISM [None]
  - CHEST PAIN [None]
  - COGNITIVE DISORDER [None]
  - CONFUSIONAL STATE [None]
  - DEPRESSION [None]
  - DISORIENTATION [None]
  - DYSARTHRIA [None]
  - DYSPHAGIA [None]
  - EYELID PTOSIS [None]
  - FACIAL PALSY [None]
  - FACIAL PARESIS [None]
  - FALL [None]
  - GASTROOESOPHAGEAL REFLUX DISEASE [None]
  - HEAD DEFORMITY [None]
  - HEADACHE [None]
  - INCORRECT ROUTE OF DRUG ADMINISTRATION [None]
  - INFLUENZA LIKE ILLNESS [None]
  - INSOMNIA [None]
  - JOINT RANGE OF MOTION DECREASED [None]
  - MALAISE [None]
  - MENTAL STATUS CHANGES [None]
  - MUSCLE INJURY [None]
  - MUSCLE TIGHTNESS [None]
  - MUSCLE TWITCHING [None]
  - MYALGIA [None]
  - OESOPHAGEAL STENOSIS [None]
  - PAIN IN EXTREMITY [None]
  - PARALYSIS [None]
  - PERSONALITY CHANGE [None]
  - RESPIRATORY DISORDER [None]
  - TREMOR [None]
  - VERTIGO [None]
  - WEIGHT DECREASED [None]
